FAERS Safety Report 7699174-9 (Version None)
Quarter: 2011Q3

REPORT INFORMATION
  Report Type: 
  Country: None (occurrence: None)
  Receive Date: 20110819
  Receipt Date: 20110811
  Transmission Date: 20111222
  Serious: Yes (Death, Other)
  Sender: FDA-Public Use
  Company Number: US-RB-031395-11

PATIENT

DRUGS (4)
  1. XANAX [Concomitant]
     Indication: ANXIETY
     Dosage: DOSING INFORMATION UNKNOWN
     Route: 064
  2. SUBOXONE [Suspect]
     Indication: DRUG DEPENDENCE
     Route: 064
     Dates: start: 20100801
  3. SUBUTEX [Suspect]
     Indication: DRUG DEPENDENCE
     Route: 064
     Dates: end: 20110501
  4. ADDERRALL [Concomitant]
     Indication: ATTENTION DEFICIT/HYPERACTIVITY DISORDER
     Dosage: DOSING INFORMATION UNKNOWN
     Route: 064

REACTIONS (2)
  - ASPHYXIA [None]
  - MATERNAL EXPOSURE DURING PREGNANCY [None]
